FAERS Safety Report 4638452-4 (Version None)
Quarter: 2005Q2

REPORT INFORMATION
  Report Type: 
  Country: None (occurrence: None)
  Receive Date: 20050418
  Receipt Date: 20050405
  Transmission Date: 20051028
  Serious: Yes (Hospitalization)
  Sender: FDA-Public Use
  Company Number: APP200500196

PATIENT
  Age: 31 Year
  Sex: Female

DRUGS (2)
  1. CHORIONIC GONADORTOPIN INJ [Suspect]
     Indication: INFERTILITY
     Dosage: UNK INJECTION
     Route: 065
  2. MENOTROPINS [Suspect]
     Indication: INFERTILITY
     Dosage: UNK INJECTION
     Route: 065

REACTIONS (15)
  - ABDOMINAL PAIN LOWER [None]
  - ABORTION THREATENED [None]
  - ANAEMIA [None]
  - DRUG EXPOSURE DURING PREGNANCY [None]
  - ECTOPIC PREGNANCY [None]
  - FALLOPIAN TUBE DISORDER [None]
  - GENITAL HAEMORRHAGE [None]
  - HAEMORRHAGE [None]
  - HAEMORRHAGIC ASCITES [None]
  - LOSS OF CONSCIOUSNESS [None]
  - NERVOUS SYSTEM DISORDER [None]
  - OVARIAN DISORDER [None]
  - OVARIAN NEOPLASM [None]
  - SWELLING [None]
  - UTERINE HAEMORRHAGE [None]
